FAERS Safety Report 7930271-6 (Version None)
Quarter: 2011Q4

REPORT INFORMATION
  Report Type: 
  Country: None (occurrence: None)
  Receive Date: 20111121
  Receipt Date: 20111112
  Transmission Date: 20120403
  Serious: Yes (Hospitalization, Other)
  Sender: FDA-Public Use
  Company Number: US-US-EMD SERONO, INC.-7008071

PATIENT
  Sex: Female
  Weight: 102 kg

DRUGS (4)
  1. REBIF [Suspect]
     Route: 058
  2. REBIF [Suspect]
     Indication: MULTIPLE SCLEROSIS
     Route: 058
     Dates: start: 20100211
  3. GABAPENTIN [Concomitant]
     Indication: DYSPHAGIA
  4. TIZANIDINE HCL [Concomitant]

REACTIONS (10)
  - DIZZINESS [None]
  - CHILLS [None]
  - MOOD SWINGS [None]
  - HEADACHE [None]
  - INJECTION SITE PAIN [None]
  - ENDOMETRIAL HYPERPLASIA [None]
  - MUSCLE SPASMS [None]
  - PYREXIA [None]
  - MENORRHAGIA [None]
  - MULTIPLE SCLEROSIS RELAPSE [None]
